FAERS Safety Report 12491614 (Version 1)
Quarter: 2016Q2

REPORT INFORMATION
  Report Type: Spontaneous
  Country: US (occurrence: None)
  Receive Date: 20160622
  Receipt Date: 20160622
  Transmission Date: 20160815
  Serious: Yes (Hospitalization)
  Sender: FDA-Public Use
  Company Number: None

PATIENT
  Age: 44 Year
  Sex: Male
  Weight: 68.49 kg

DRUGS (6)
  1. AZITHROMYCIN ANHYDROUS. [Concomitant]
     Active Substance: AZITHROMYCIN ANHYDROUS
  2. DOLUTEGRAVIR [Suspect]
     Active Substance: DOLUTEGRAVIR
     Indication: HIV INFECTION
     Route: 048
     Dates: start: 20160314, end: 20160512
  3. TRIMETHOPRIM DS [Concomitant]
  4. LAMIVUDINE. [Concomitant]
     Active Substance: LAMIVUDINE
  5. SULFAMETHOXAZOLE [Concomitant]
     Active Substance: SULFAMETHOXAZOLE
  6. ABACAVIR. [Concomitant]
     Active Substance: ABACAVIR

REACTIONS (8)
  - Pyrexia [None]
  - Muscle spasms [None]
  - Immune reconstitution inflammatory syndrome [None]
  - Asthenia [None]
  - Pain [None]
  - Rash [None]
  - Pain in extremity [None]
  - Abasia [None]
